FAERS Safety Report 22532788 (Version 1)
Quarter: 2023Q2

REPORT INFORMATION
  Report Type: Report from Study
  Country: MX (occurrence: MX)
  Receive Date: 20230607
  Receipt Date: 20230607
  Transmission Date: 20230722
  Serious: Yes (Life-Threatening)
  Sender: FDA-Public Use
  Company Number: MX-002147023-NVSC2022MX127799

PATIENT
  Age: 38 Year
  Sex: Male
  Weight: 92 kg

DRUGS (5)
  1. EXFORGE [Suspect]
     Active Substance: AMLODIPINE BESYLATE\VALSARTAN
     Indication: Hypertension
     Dosage: 1 DOSAGE FORM, BID (320/10 MG)
     Route: 048
  2. ATORVASTATIN [Concomitant]
     Active Substance: ATORVASTATIN
     Indication: Blood cholesterol abnormal
     Dosage: 20 MG (BY MOUTH)
     Route: 048
     Dates: start: 20220530
  3. SPIRONOLACTONE [Concomitant]
     Active Substance: SPIRONOLACTONE
     Indication: Hypertension
     Dosage: 1 DOSAGE FORM, (25 MG, BY MOUTH) BID
     Route: 048
     Dates: start: 20220530
  4. AZILSARTAN KAMEDOXOMIL [Concomitant]
     Active Substance: AZILSARTAN KAMEDOXOMIL
     Indication: Hypertension
     Dosage: 1 DOSAGE FORM, (80/12.5 MG, BY MOUTH) BID
     Route: 048
     Dates: start: 20220530
  5. ALPRAZOLAM [Concomitant]
     Active Substance: ALPRAZOLAM
     Indication: Hypertension
     Dosage: 1 DOSAGE FORM, (0.5 MG, BY MOUTH) BID
     Route: 048
     Dates: start: 20220530

REACTIONS (3)
  - Hypertension [Not Recovered/Not Resolved]
  - Urinary tract disorder [Not Recovered/Not Resolved]
  - Inappropriate schedule of product administration [Unknown]

NARRATIVE: CASE EVENT DATE: 20220530
